FAERS Safety Report 23222258 (Version 3)
Quarter: 2024Q1

REPORT INFORMATION
  Report Type: Report from Study
  Country: US (occurrence: US)
  Receive Date: 20231123
  Receipt Date: 20240113
  Transmission Date: 20240409
  Serious: No
  Sender: FDA-Public Use
  Company Number: US-002147023-NVSC2023US247957

PATIENT
  Sex: Female
  Weight: 50.8 kg

DRUGS (1)
  1. ENTRESTO [Suspect]
     Active Substance: SACUBITRIL\VALSARTAN
     Indication: Product used for unknown indication
     Dosage: 0.5 DOSAGE FORM, QD
     Route: 065

REACTIONS (5)
  - Weight increased [Recovered/Resolved]
  - Wrong technique in product usage process [Unknown]
  - Prescribed underdose [Unknown]
  - Pharyngeal swelling [Unknown]
  - Product use complaint [Unknown]
